FAERS Safety Report 16974185 (Version 1)
Quarter: 2019Q4

REPORT INFORMATION
  Report Type: Report from Study
  Country: MX (occurrence: MX)
  Receive Date: 20191030
  Receipt Date: 20191030
  Transmission Date: 20200122
  Serious: Yes (Other)
  Sender: FDA-Public Use
  Company Number: PHHY2018MX010632

PATIENT
  Age: 63 Year
  Sex: Female
  Weight: 73 kg

DRUGS (5)
  1. GALVUS MET [Suspect]
     Active Substance: METFORMIN HYDROCHLORIDE\VILDAGLIPTIN
     Dosage: 0.5 DF, BID (METFORMIN 500 MG, VILDAGLIPTIN 50 MG)
     Route: 048
     Dates: start: 201709
  2. TOLTERODINE [Concomitant]
     Active Substance: TOLTERODINE
     Indication: BLADDER DISORDER
     Dosage: 2 DF, QD
     Route: 065
     Dates: start: 201701
  3. TAMSULOSIN [Concomitant]
     Active Substance: TAMSULOSIN
     Indication: BLADDER DISORDER
     Dosage: 1 DF, QD
     Route: 065
     Dates: start: 201701
  4. LORATADINE. [Concomitant]
     Active Substance: LORATADINE
     Indication: PRODUCT USED FOR UNKNOWN INDICATION
     Dosage: 1 DF, Q12H
     Route: 065
     Dates: start: 20180104
  5. GALVUS MET [Suspect]
     Active Substance: METFORMIN HYDROCHLORIDE\VILDAGLIPTIN
     Indication: DIABETES MELLITUS
     Dosage: 1 DF, BID
     Route: 065

REACTIONS (12)
  - Osteorrhagia [Unknown]
  - Stomatitis [Unknown]
  - Peripheral swelling [Recovered/Resolved]
  - Dysstasia [Unknown]
  - Loose tooth [Unknown]
  - Pain in extremity [Unknown]
  - Incorrect dose administered [Unknown]
  - Blood glucose increased [Recovered/Resolved]
  - Mouth haemorrhage [Unknown]
  - Fall [Recovering/Resolving]
  - Erythema [Unknown]
  - Head discomfort [Unknown]

NARRATIVE: CASE EVENT DATE: 201709
